FAERS Safety Report 9654858 (Version 2)
Quarter: 2013Q4

REPORT INFORMATION
  Report Type: Spontaneous
  Country: US (occurrence: US)
  Receive Date: 20131029
  Receipt Date: 20131120
  Transmission Date: 20140711
  Serious: Yes (Hospitalization)
  Sender: FDA-Public Use
  Company Number: US-GILEAD-2013-0086408

PATIENT
  Sex: Female

DRUGS (3)
  1. LETAIRIS [Suspect]
     Indication: PULMONARY HYPERTENSION
     Dosage: 5 MG, QD
     Dates: start: 20130903, end: 20131004
  2. LETAIRIS [Suspect]
     Indication: CARDIAC FAILURE
  3. LETAIRIS [Suspect]
     Indication: CARDIAC VALVE DISEASE

REACTIONS (2)
  - Dyspnoea [Unknown]
  - Oedema peripheral [Unknown]
